FAERS Safety Report 4752390-8 (Version None)
Quarter: 2005Q3

REPORT INFORMATION
  Report Type: 
  Country: None (occurrence: None)
  Receive Date: 20050823
  Receipt Date: 20050810
  Transmission Date: 20060218
  Serious: Yes (Hospitalization)
  Sender: FDA-Public Use
  Company Number: 2005113671

PATIENT
  Age: 59 Year
  Sex: Male
  Weight: 95 kg

DRUGS (2)
  1. CAMPTOSAR [Suspect]
     Indication: NEOPLASM
     Dosage: 700 MG (DAILY, INTRAVENOUS
     Route: 042
     Dates: start: 20050721
  2. CETUXIMAB CETUXIMAB [Concomitant]

REACTIONS (2)
  - DYSPNOEA [None]
  - HAEMODYNAMIC INSTABILITY [None]
